FAERS Safety Report 4820892-1 (Version None)
Quarter: 2005Q4

REPORT INFORMATION
  Report Type: 
  Country: None (occurrence: None)
  Receive Date: 20051104
  Receipt Date: 20051104
  Transmission Date: 20060501
  Serious: Yes (Hospitalization)
  Sender: FDA-Public Use
  Company Number: None

PATIENT
  Age: 45 Year
  Sex: Male
  Weight: 98.8842 kg

DRUGS (3)
  1. LEVOFLOXACIN [Suspect]
     Indication: BRONCHITIS
     Dosage: 750 MG IVPB X 1 DOSE
     Route: 042
     Dates: start: 20050923
  2. LEVOFLOXACIN [Suspect]
     Dosage: 500 MG PO X 1 DOSE
     Route: 048
     Dates: start: 20050924
  3. TRAMADOL (ULTRAM) [Concomitant]

REACTIONS (6)
  - ASTHENIA [None]
  - CHILLS [None]
  - HYPOAESTHESIA [None]
  - PAIN [None]
  - RHABDOMYOLYSIS [None]
  - TREMOR [None]
